FAERS Safety Report 5166677-0 (Version None)
Quarter: 2006Q4

REPORT INFORMATION
  Report Type: 
  Country: None (occurrence: None)
  Receive Date: 20061201
  Receipt Date: 20061201
  Transmission Date: 20070319
  Serious: Yes (Death)
  Sender: FDA-Public Use
  Company Number: None

PATIENT
  Age: 90 Year
  Sex: Female

DRUGS (2)
  1. LUCENTIS [Suspect]
     Indication: CHOROIDAL NEOVASCULARISATION
     Dosage: 0.5MG/ 0.05ML
     Dates: start: 20060731
  2. LUCENTIS [Suspect]
     Dosage: 0.5MG / 0.05ML
     Dates: start: 20060907

REACTIONS (3)
  - DIARRHOEA [None]
  - MYOCARDIAL INFARCTION [None]
  - STOMACH DISCOMFORT [None]
